FAERS Safety Report 13947964 (Version 8)
Quarter: 2018Q2

REPORT INFORMATION
  Report Type: Spontaneous
  Country: US (occurrence: US)
  Receive Date: 20170908
  Receipt Date: 20180524
  Transmission Date: 20180711
  Serious: Yes (Hospitalization, Other)
  Sender: FDA-Public Use
  Company Number: US-PFIZER INC-2017248351

PATIENT
  Age: 49 Year
  Sex: Female
  Weight: 68.27 kg

DRUGS (6)
  1. IBRANCE [Suspect]
     Active Substance: PALBOCICLIB
     Dosage: 125 MG, CYCLIC (D1-D21 Q28 DAYS)
     Route: 048
  2. IBRANCE [Suspect]
     Active Substance: PALBOCICLIB
     Dosage: 125 MG, CYCLIC (D1-D21 Q28 DAYS)
     Route: 048
  3. IBRANCE [Suspect]
     Active Substance: PALBOCICLIB
     Dosage: 125 MG, CYCLIC (DAYS 1-21 Q28 DAYS)
     Route: 048
     Dates: end: 20171101
  4. IBRANCE [Suspect]
     Active Substance: PALBOCICLIB
     Dosage: 125 MG, CYCLIC (D1-21 Q28 DAYS)
     Route: 048
  5. IBRANCE [Suspect]
     Active Substance: PALBOCICLIB
     Dosage: 125 MG, CYCLIC (D1-21 Q28 DAYS)
     Route: 048
  6. IBRANCE [Suspect]
     Active Substance: PALBOCICLIB
     Indication: BREAST CANCER METASTATIC
     Dosage: 125 MG, CYCLIC (D1-D21 Q28 DAYS)
     Route: 048
     Dates: start: 20170427

REACTIONS (26)
  - Cough [Unknown]
  - Blister [Unknown]
  - White blood cell count decreased [Unknown]
  - Feeling cold [Unknown]
  - Cellulitis [Unknown]
  - Malaise [Unknown]
  - Somnolence [Unknown]
  - Anaemia [Unknown]
  - Burning sensation [Unknown]
  - Dyspnoea exertional [Unknown]
  - Pneumonia [Unknown]
  - Rash [Unknown]
  - Pruritus [Unknown]
  - Haemoglobin decreased [Unknown]
  - Chest discomfort [Unknown]
  - Skin exfoliation [Unknown]
  - Hallucination, auditory [Unknown]
  - Peripheral swelling [Unknown]
  - Nausea [Unknown]
  - Nasopharyngitis [Unknown]
  - Diarrhoea [Unknown]
  - Pain [Unknown]
  - Hypersomnia [Unknown]
  - Blood creatinine increased [Unknown]
  - Abdominal infection [Unknown]
  - Lung abscess [Unknown]

NARRATIVE: CASE EVENT DATE: 2017
